FAERS Safety Report 7242825-3 (Version None)
Quarter: 2011Q1

REPORT INFORMATION
  Report Type: 
  Country: None (occurrence: None)
  Receive Date: 20110125
  Receipt Date: 20110114
  Transmission Date: 20110831
  Serious: Yes (Other)
  Sender: FDA-Public Use
  Company Number: PHFR2010IE01362

PATIENT
  Sex: Female

DRUGS (1)
  1. CLOZARIL [Suspect]
     Indication: SCHIZOPHRENIA
     Dosage: 450 MG / DAY
     Route: 048
     Dates: start: 20090126

REACTIONS (5)
  - CELLULITIS [None]
  - OEDEMA PERIPHERAL [None]
  - WHITE BLOOD CELL COUNT DECREASED [None]
  - RED BLOOD CELL SEDIMENTATION RATE INCREASED [None]
  - NEUTROPHIL COUNT DECREASED [None]
